FAERS Safety Report 16080195 (Version 1)
Quarter: 2019Q1

REPORT INFORMATION
  Report Type: Report from Study
  Country: KR (occurrence: KR)
  Receive Date: 20190315
  Receipt Date: 20190315
  Transmission Date: 20190418
  Serious: Yes (Hospitalization)
  Sender: FDA-Public Use
  Company Number: KR-CELLTRION INC.-2019KR017905

PATIENT

DRUGS (18)
  1. RAMUCIRUMAB [Suspect]
     Active Substance: RAMUCIRUMAB
     Indication: HER-2 POSITIVE GASTRIC CANCER
     Dosage: 457.6 MG
     Route: 042
     Dates: start: 20181106, end: 20181211
  2. RAMUCIRUMAB [Suspect]
     Active Substance: RAMUCIRUMAB
     Dosage: 405.6 MG
     Route: 042
     Dates: start: 20181218, end: 20190128
  3. NS 0.9% [Concomitant]
     Dosage: 1000 ML, QD
     Route: 042
     Dates: start: 20190111, end: 20190125
  4. GENEXOL                            /00282201/ [Suspect]
     Active Substance: NONOXYNOL-10
     Dosage: 102.9 MG
     Route: 042
     Dates: start: 20190128, end: 20190128
  5. LOPERAMIDE [Concomitant]
     Active Substance: LOPERAMIDE
     Indication: DIARRHOEA
     Dosage: 2 MG, PRN
     Route: 048
     Dates: start: 20190109
  6. VANCOZIN [Concomitant]
     Indication: DIARRHOEA
     Dosage: 125 MG, BID
     Route: 048
     Dates: start: 20190117
  7. HERZUMA [Suspect]
     Active Substance: TRASTUZUMAB-PKRB
     Dosage: 228.8 MG
     Route: 042
     Dates: start: 20181211
  8. ZYLORIC [Concomitant]
     Active Substance: ALLOPURINOL
     Indication: BLOOD CREATININE INCREASED
     Dosage: 100 MG, BID
     Route: 048
     Dates: start: 20190116, end: 20190118
  9. TASNA [Concomitant]
     Indication: BLOOD CREATININE INCREASED
     Dosage: 1000 MG, BID
     Route: 048
     Dates: start: 20190117, end: 20190121
  10. NS 0.45% [Concomitant]
     Indication: SUPPORTIVE CARE
     Dosage: 1000 ML, QD
     Route: 042
     Dates: start: 20190109, end: 20190113
  11. NS 0.9% [Concomitant]
     Indication: SUPPORTIVE CARE
     Dosage: 1000 ML, BID
     Route: 042
     Dates: start: 20190109, end: 20190110
  12. HERZUMA [Suspect]
     Active Substance: TRASTUZUMAB-PKRB
     Dosage: 114.4 MG
     Route: 042
     Dates: start: 20181113
  13. GENEXOL /00282201/ [Suspect]
     Active Substance: NONOXYNOL-10
     Indication: HER-2 POSITIVE GASTRIC CANCER
     Dosage: 124.8 MG
     Route: 042
     Dates: start: 20181106, end: 20181211
  14. HERZUMA [Suspect]
     Active Substance: TRASTUZUMAB-PKRB
     Dosage: 101.4 MG
     Route: 042
     Dates: start: 20181218, end: 20190128
  15. GENEXOL                            /00282201/ [Suspect]
     Active Substance: NONOXYNOL-10
     Dosage: 117.6 MG
     Route: 042
     Dates: start: 20181218, end: 20181218
  16. FLASINYL [Concomitant]
     Indication: ANTIBIOTIC THERAPY
     Dosage: 500 MG, TID
     Route: 048
     Dates: start: 20190109, end: 20190116
  17. SMECTA [Concomitant]
     Active Substance: MONTMORILLONITE
     Indication: DIARRHOEA
     Dosage: 20 ML, TID
     Route: 048
     Dates: start: 20190125
  18. HERZUMA [Suspect]
     Active Substance: TRASTUZUMAB-PKRB
     Indication: HER-2 POSITIVE GASTRIC CANCER
     Dosage: 228.8 MG
     Route: 042
     Dates: start: 20181106, end: 20181106

REACTIONS (2)
  - Blood creatinine increased [Recovered/Resolved]
  - Clostridium difficile infection [Recovered/Resolved]

NARRATIVE: CASE EVENT DATE: 20190107
